FAERS Safety Report 11704254 (Version 1)
Quarter: 2015Q4

REPORT INFORMATION
  Report Type: Spontaneous
  Country: US (occurrence: US)
  Receive Date: 20151106
  Receipt Date: 20151106
  Transmission Date: 20160304
  Serious: No
  Sender: FDA-Public Use
  Company Number: US-TAKEDA-2015TUS015390

PATIENT
  Age: 5 Decade
  Sex: Female

DRUGS (1)
  1. DEXILANT [Suspect]
     Active Substance: DEXLANSOPRAZOLE
     Indication: HIATUS HERNIA
     Dosage: 60 MG, QD
     Route: 048

REACTIONS (3)
  - Weight increased [Recovered/Resolved]
  - Abdominal distension [Recovered/Resolved]
  - Arthralgia [Recovered/Resolved]
